FAERS Safety Report 15478188 (Version 1)
Quarter: 2018Q4

REPORT INFORMATION
  Report Type: Spontaneous
  Country: DE (occurrence: DE)
  Receive Date: 20181009
  Receipt Date: 20181009
  Transmission Date: 20190205
  Serious: Yes (Hospitalization)
  Sender: FDA-Public Use
  Company Number: DE-TORRENT-00001841

PATIENT
  Age: 68 Year
  Sex: Male

DRUGS (17)
  1. NEXAVAR [Suspect]
     Active Substance: SORAFENIB
     Indication: METASTATIC RENAL CELL CARCINOMA
     Dosage: ZUNCHST 2X2 TBL. TGL., (800 MG DAILY, DOSAGE FORM: 82)
     Route: 048
     Dates: start: 20080608, end: 20080809
  2. LOCOL [Concomitant]
     Indication: HYPERLIPIDAEMIA
     Dosage: 80 MG MILLIGRAM(S) EVERY DAY
     Route: 048
     Dates: start: 20080601
  3. PARACETAMOL [Concomitant]
     Active Substance: ACETAMINOPHEN
     Indication: PAIN
     Dosage: AM 09.08.08 NUR 2 TBL. EINGENOMMEN000 MG MILLIGRAM(S) EVERY DAY
     Route: 048
     Dates: start: 20080807, end: 20080809
  4. PENTALONG [Concomitant]
     Active Substance: PENTAERYTHRITOL TETRANITRATE
     Indication: CORONARY ARTERY DISEASE
     Dosage: 240 MG MILLIGRAM(S) EVERY DAY
     Route: 048
     Dates: start: 20060601
  5. AMLODIPINE [Suspect]
     Active Substance: AMLODIPINE BESYLATE
     Indication: HYPERTENSION
     Dosage: 10 MG MILLIGRAM(S) EVERY DAY
     Route: 048
     Dates: start: 20080601
  6. BELOC ZOK [Concomitant]
     Active Substance: METOPROLOL SUCCINATE
     Indication: ARRHYTHMIA
     Dosage: 190 MG MILLIGRAM(S) EVERY DAY
     Route: 048
     Dates: start: 20001001
  7. ACERBON [Suspect]
     Active Substance: LISINOPRIL
     Indication: HYPERTENSION
     Dosage: FRH 20MG, ABENDS 10MG (20 MG IN THE MORNING, 10 MG IN THE EVENING )
     Route: 048
     Dates: start: 1996, end: 20081027
  8. METHIZOL [Concomitant]
     Active Substance: METHIMAZOLE
     Indication: HYPERTHYROIDISM
     Dosage: 5 MG MILLIGRAM(S) EVERY DAY
     Route: 048
     Dates: start: 20080201
  9. ZOMETA [Suspect]
     Active Substance: ZOLEDRONIC ACID
     Indication: METASTASES TO BONE
     Dosage: 4 MG MILLIGRAM(S) EVERY MONTH
     Route: 017
     Dates: start: 20080618, end: 20080716
  10. DIGITOXIN [Concomitant]
     Active Substance: DIGITOXIN
     Indication: CARDIAC FAILURE
     Dosage: 0.07 MG MILLIGRAM(S) EVERY DAY
     Route: 048
     Dates: start: 20080601
  11. TAMSULOSIN [Suspect]
     Active Substance: TAMSULOSIN
     Indication: BENIGN PROSTATIC HYPERPLASIA
     Dosage: 0.4 MG MILLIGRAM(S) EVERY DAY
     Route: 048
  12. GLUCOBAY [Concomitant]
     Active Substance: ACARBOSE
     Indication: TYPE 2 DIABETES MELLITUS
     Dosage: 150 MG MILLIGRAM(S) EVERY DAY
     Route: 048
     Dates: start: 1996
  13. ASPIRIN. [Concomitant]
     Active Substance: ASPIRIN
     Indication: CORONARY ARTERY DISEASE
     Dosage: 100 MG MILLIGRAM(S) EVERY DAY
     Route: 048
     Dates: start: 20001101
  14. TOREM [Concomitant]
     Active Substance: TORSEMIDE
     Indication: CARDIAC FAILURE
     Dosage: 5 MG MILLIGRAM(S) EVERY DAY
     Route: 048
     Dates: start: 20080601
  15. ALDACTONE [Concomitant]
     Active Substance: SPIRONOLACTONE
     Indication: CARDIAC FAILURE
     Dosage: 25 MG MILLIGRAM(S) EVERY DAY
     Route: 048
     Dates: start: 20080601
  16. AMARYL [Concomitant]
     Active Substance: GLIMEPIRIDE
     Indication: TYPE 2 DIABETES MELLITUS
     Dosage: 1 MG MILLIGRAM(S) EVERY DAY
     Route: 048
     Dates: start: 20080201
  17. CLOPIDOGREL [Concomitant]
     Active Substance: CLOPIDOGREL BISULFATE
     Indication: STENT PLACEMENT
     Dosage: DAILY DOSE: 75 MG MILLIGRAM(S) EVERY DAY
     Dates: start: 20080301

REACTIONS (14)
  - Swollen tongue [Unknown]
  - Dysphagia [Recovered/Resolved]
  - Angioedema [Recovered/Resolved]
  - Haemoglobin decreased [Unknown]
  - Mouth swelling [Recovered/Resolved]
  - Speech disorder [Recovered/Resolved]
  - Platelet count increased [Unknown]
  - Blood sodium decreased [Unknown]
  - Mouth swelling [Recovered/Resolved]
  - C-reactive protein increased [Unknown]
  - Albumin urine [Unknown]
  - Red blood cell sedimentation rate increased [Unknown]
  - Lip swelling [Unknown]
  - Gamma-glutamyltransferase increased [Unknown]

NARRATIVE: CASE EVENT DATE: 20080810
